FAERS Safety Report 16298324 (Version 3)
Quarter: 2020Q4

REPORT INFORMATION
  Report Type: Spontaneous
  Country: US (occurrence: US)
  Receive Date: 20190510
  Receipt Date: 20201210
  Transmission Date: 20210113
  Serious: Yes (Hospitalization, Other)
  Sender: FDA-Public Use
  Company Number: US-ASTRAZENECA-2019SE63932

PATIENT
  Age: 14889 Day
  Sex: Female
  Weight: 132.9 kg

DRUGS (59)
  1. LISINOPRIL-HCTZ [Concomitant]
     Active Substance: HYDROCHLOROTHIAZIDE\LISINOPRIL
     Indication: HYPERTENSION
     Dosage: 20/25 MG, 1 TAB, 2/DAY
     Dates: start: 20151014, end: 20151114
  2. PROMETHAZINE [Concomitant]
     Active Substance: PROMETHAZINE HYDROCHLORIDE
     Indication: NAUSEA
     Dates: start: 20151013, end: 20160705
  3. HYDROMORPHONE [Concomitant]
     Active Substance: HYDROMORPHONE
  4. PREVACID 24 HR [Suspect]
     Active Substance: LANSOPRAZOLE
     Route: 065
     Dates: start: 200606, end: 201501
  5. PROTONIX [Suspect]
     Active Substance: PANTOPRAZOLE SODIUM
     Indication: GASTROOESOPHAGEAL REFLUX DISEASE
     Dosage: GENERIC
     Route: 065
     Dates: start: 2013, end: 2016
  6. MAALOX ANTACID [Concomitant]
     Active Substance: ALUMINUM HYDROXIDE\DIMETHICONE\MAGNESIUM HYDROXIDE
  7. COMPAZINE [Concomitant]
     Active Substance: PROCHLORPERAZINE MALEATE
  8. ZOFRAN [Concomitant]
     Active Substance: ONDANSETRON HYDROCHLORIDE
  9. CYMBALTA [Concomitant]
     Active Substance: DULOXETINE HYDROCHLORIDE
  10. REGLAN [Concomitant]
     Active Substance: METOCLOPRAMIDE HYDROCHLORIDE
  11. MIRALAX [Concomitant]
     Active Substance: POLYETHYLENE GLYCOL 3350
  12. NEXIUM [Suspect]
     Active Substance: ESOMEPRAZOLE MAGNESIUM
     Indication: GASTROOESOPHAGEAL REFLUX DISEASE
     Dosage: GENERIC
     Route: 065
     Dates: start: 2014, end: 2016
  13. LYRICA [Concomitant]
     Active Substance: PREGABALIN
     Indication: UTERINE LEIOMYOMA
     Dosage: 1 TAB, 2/DAY
     Dates: start: 20150921, end: 20160223
  14. BENADRYL [Concomitant]
     Active Substance: DIPHENHYDRAMINE HYDROCHLORIDE
     Indication: HYPERSENSITIVITY
     Dates: start: 2015, end: 2019
  15. VALIUM [Concomitant]
     Active Substance: DIAZEPAM
  16. SCOPOLAMINE [Concomitant]
     Active Substance: SCOPOLAMINE
  17. NEXIUM [Suspect]
     Active Substance: ESOMEPRAZOLE MAGNESIUM
     Indication: GASTROOESOPHAGEAL REFLUX DISEASE
     Route: 048
     Dates: start: 200606, end: 201501
  18. PRILOSEC [Suspect]
     Active Substance: OMEPRAZOLE MAGNESIUM
     Indication: GASTROOESOPHAGEAL REFLUX DISEASE
     Route: 048
     Dates: start: 1997, end: 2000
  19. PREVACID [Suspect]
     Active Substance: LANSOPRAZOLE
     Indication: GASTROOESOPHAGEAL REFLUX DISEASE
     Route: 065
     Dates: start: 200606, end: 201501
  20. NOVOLOG [Concomitant]
     Active Substance: INSULIN ASPART
     Indication: DIABETES MELLITUS
     Dates: start: 20160605, end: 20160805
  21. METFORMIN ER [Concomitant]
     Active Substance: METFORMIN HYDROCHLORIDE
     Indication: DIABETES MELLITUS
     Dosage: 500 MG, 24HR 2 TABS, 2/DAY
     Dates: start: 20151208, end: 20160515
  22. IBUPROFEN. [Concomitant]
     Active Substance: IBUPROFEN
     Indication: ANALGESIC THERAPY
     Dosage: WITHIN 5 YEARS
  23. NORCO [Concomitant]
     Active Substance: ACETAMINOPHEN\HYDROCODONE BITARTRATE
  24. ENOXAPARIN [Concomitant]
     Active Substance: ENOXAPARIN
  25. MAGNESIUM SULFATE. [Concomitant]
     Active Substance: MAGNESIUM SULFATE
  26. SODIUM CHLORIDE. [Concomitant]
     Active Substance: SODIUM CHLORIDE
  27. GLUCOSE [Concomitant]
     Active Substance: DEXTROSE
  28. IOPAMIDOL [Concomitant]
     Active Substance: IOPAMIDOL
  29. VENLAFAXINE [Concomitant]
     Active Substance: VENLAFAXINE HYDROCHLORIDE
  30. AZITHROMYCIN ANHYDROUS. [Concomitant]
     Active Substance: AZITHROMYCIN ANHYDROUS
  31. OXYCONTIN [Concomitant]
     Active Substance: OXYCODONE HYDROCHLORIDE
     Indication: PAIN
     Dosage: 1 TAB, 2/DAY
     Dates: start: 20170814, end: 20170914
  32. FERROUS SULFATE. [Concomitant]
     Active Substance: FERROUS SULFATE
     Indication: BLOOD IRON ABNORMAL
     Dates: start: 20160201, end: 20160301
  33. PERCOCET [Concomitant]
     Active Substance: ACETAMINOPHEN\OXYCODONE HYDROCHLORIDE
  34. LEVSIN [Concomitant]
     Active Substance: HYOSCYAMINE SULFATE
  35. PRILOSEC [Suspect]
     Active Substance: OMEPRAZOLE MAGNESIUM
     Indication: GASTROOESOPHAGEAL REFLUX DISEASE
     Route: 048
     Dates: start: 200606, end: 201501
  36. DICLOFENAC SODIUM. [Concomitant]
     Active Substance: DICLOFENAC SODIUM
     Indication: PAIN
     Dates: start: 20151103, end: 20160211
  37. METHOCARBAMOL. [Concomitant]
     Active Substance: METHOCARBAMOL
     Indication: MUSCLE RELAXANT THERAPY
     Dosage: 2 TABS, 3/DAY
     Dates: start: 20160209, end: 20160220
  38. MELATONIN [Concomitant]
     Active Substance: MELATONIN
     Indication: SLEEP DISORDER
     Dates: start: 2015, end: 2019
  39. ZANTAC [Concomitant]
     Active Substance: RANITIDINE HYDROCHLORIDE
     Dosage: 150
     Dates: start: 2010, end: 2011
  40. CARAFATE [Concomitant]
     Active Substance: SUCRALFATE
  41. NEXIUM [Suspect]
     Active Substance: ESOMEPRAZOLE MAGNESIUM
     Indication: GASTROOESOPHAGEAL REFLUX DISEASE
     Route: 048
     Dates: start: 20130318, end: 20130518
  42. NEXIUM [Suspect]
     Active Substance: ESOMEPRAZOLE MAGNESIUM
     Indication: GASTROOESOPHAGEAL REFLUX DISEASE
     Route: 048
     Dates: start: 20140409, end: 20150207
  43. NEXIUM [Suspect]
     Active Substance: ESOMEPRAZOLE MAGNESIUM
     Indication: GASTROOESOPHAGEAL REFLUX DISEASE
     Route: 048
     Dates: start: 20150921, end: 20151021
  44. PEPCID [Concomitant]
     Active Substance: FAMOTIDINE
     Dates: start: 2010, end: 2011
  45. XYLOCAINE [Concomitant]
     Active Substance: LIDOCAINE HYDROCHLORIDE
  46. TORADOL [Concomitant]
     Active Substance: KETOROLAC TROMETHAMINE
  47. HEPARIN [Concomitant]
     Active Substance: HEPARIN SODIUM
  48. COLACE [Concomitant]
     Active Substance: DOCUSATE SODIUM
  49. DULOXETINE. [Concomitant]
     Active Substance: DULOXETINE
  50. RINGERS SOLUTION [Concomitant]
     Active Substance: CALCIUM CHLORIDE\POTASSIUM CHLORIDE\SODIUM CHLORIDE
  51. PREVACID [Suspect]
     Active Substance: LANSOPRAZOLE
     Indication: GASTROOESOPHAGEAL REFLUX DISEASE
     Route: 065
     Dates: start: 1997, end: 2003
  52. PROTONIX [Suspect]
     Active Substance: PANTOPRAZOLE SODIUM
     Indication: GASTROOESOPHAGEAL REFLUX DISEASE
     Route: 065
     Dates: start: 200606, end: 201501
  53. PROTONIX [Suspect]
     Active Substance: PANTOPRAZOLE SODIUM
     Indication: GASTROOESOPHAGEAL REFLUX DISEASE
     Route: 065
     Dates: start: 2000, end: 2016
  54. HYDROXYZINE [Concomitant]
     Active Substance: HYDROXYZINE HYDROCHLORIDE
     Indication: SLEEP DISORDER
     Dates: start: 20150506, end: 20150521
  55. LISINOPRIL-HCTZ [Concomitant]
     Active Substance: HYDROCHLOROTHIAZIDE\LISINOPRIL
     Indication: HYPERTENSION
     Dosage: 20/25 MG, 1 TAB, 2/DAY
     Dates: start: 20160605, end: 20160705
  56. TIZANIDINE. [Concomitant]
     Active Substance: TIZANIDINE
     Indication: MUSCLE RELAXANT THERAPY
     Dosage: 1 TAB AS NEEDED
     Dates: start: 20151210, end: 20160303
  57. BUSPAR [Concomitant]
     Active Substance: BUSPIRONE HYDROCHLORIDE
  58. NEXIUM [Suspect]
     Active Substance: ESOMEPRAZOLE MAGNESIUM
     Indication: GASTROOESOPHAGEAL REFLUX DISEASE
     Route: 048
     Dates: start: 20060606, end: 20070129
  59. PROTONIX [Suspect]
     Active Substance: PANTOPRAZOLE SODIUM
     Route: 065
     Dates: start: 200606, end: 201501

REACTIONS (5)
  - Acute kidney injury [Not Recovered/Not Resolved]
  - Nephrogenic anaemia [Unknown]
  - Renal failure [Unknown]
  - Chronic kidney disease [Not Recovered/Not Resolved]
  - Renal tubular necrosis [Unknown]

NARRATIVE: CASE EVENT DATE: 20120908
